FAERS Safety Report 7475100-2 (Version None)
Quarter: 2011Q2

REPORT INFORMATION
  Report Type: 
  Country: None (occurrence: None)
  Receive Date: 20110512
  Receipt Date: 20110421
  Transmission Date: 20111010
  Serious: No
  Sender: FDA-Public Use
  Company Number: US-B.I. PHARMACEUTICALS,INC./RIDGEFIELD-2011-BP-01379BP

PATIENT
  Sex: Female

DRUGS (9)
  1. PRADAXA [Suspect]
     Indication: THROMBOSIS
  2. OMEPRAZOLE [Concomitant]
  3. DIOVAN [Concomitant]
  4. FUROSEMIDE [Concomitant]
  5. PRADAXA [Suspect]
     Indication: ATRIAL FIBRILLATION
     Dosage: 300 MG
     Route: 048
     Dates: start: 20101229
  6. VERAPAMIL [Concomitant]
  7. TRAMADOL HYDROCHLORIDE [Concomitant]
  8. POTASSIUM [Concomitant]
  9. PERRIGO [Concomitant]

REACTIONS (3)
  - FLATULENCE [None]
  - CONTUSION [None]
  - ABDOMINAL PAIN UPPER [None]
